FAERS Safety Report 6572128-1 (Version None)
Quarter: 2010Q1

REPORT INFORMATION
  Report Type: 
  Country: None (occurrence: None)
  Receive Date: 20100205
  Receipt Date: 20100126
  Transmission Date: 20100710
  Serious: Yes (Hospitalization)
  Sender: FDA-Public Use
  Company Number: US-AMGEN-KDC388546

PATIENT
  Sex: Female

DRUGS (20)
  1. CINACALCET HYDROCHLORIDE [Suspect]
     Indication: HYPERPARATHYROIDISM SECONDARY
     Route: 048
     Dates: start: 20100107
  2. EPOGEN [Concomitant]
  3. ALBUTEROL SULATE [Concomitant]
  4. OXYGEN [Concomitant]
  5. MULTI-VITAMINS [Concomitant]
     Route: 048
  6. MEGACE [Concomitant]
  7. PHOSLO [Concomitant]
  8. INSULIN [Concomitant]
  9. LANTUS [Concomitant]
     Route: 058
  10. CARDURA [Concomitant]
  11. NOVOLOG [Concomitant]
     Route: 058
  12. NORVASC [Concomitant]
  13. PLAVIX [Concomitant]
  14. PROTONIX [Concomitant]
  15. HYDRALAZINE [Concomitant]
  16. COREG [Concomitant]
  17. COLACE [Concomitant]
  18. LISINOPRIL [Concomitant]
  19. REGLAN [Concomitant]
  20. DOSTINEX [Concomitant]

REACTIONS (22)
  - BLOOD CREATININE INCREASED [None]
  - BLOOD GLUCOSE INCREASED [None]
  - BLOOD POTASSIUM INCREASED [None]
  - BLOOD PRESSURE INCREASED [None]
  - BLOOD UREA INCREASED [None]
  - BRADYCARDIA [None]
  - CARDIOMEGALY [None]
  - CARDIOMYOPATHY [None]
  - ELECTROCARDIOGRAM QT PROLONGED [None]
  - ELECTROCARDIOGRAM T WAVE ABNORMAL [None]
  - ELECTROCARDIOGRAM T WAVE INVERSION [None]
  - HEADACHE [None]
  - LEFT VENTRICULAR HYPERTROPHY [None]
  - LOSS OF CONSCIOUSNESS [None]
  - MALAISE [None]
  - MITRAL VALVE INCOMPETENCE [None]
  - PERICARDIAL EFFUSION [None]
  - SICK SINUS SYNDROME [None]
  - SINUS ARRHYTHMIA [None]
  - SYNCOPE [None]
  - TACHYCARDIA [None]
  - TRICUSPID VALVE INCOMPETENCE [None]
